FAERS Safety Report 7853592-4 (Version None)
Quarter: 2011Q4

REPORT INFORMATION
  Report Type: 
  Country: None (occurrence: None)
  Receive Date: 20111026
  Receipt Date: 20111018
  Transmission Date: 20120403
  Serious: Yes (Other)
  Sender: FDA-Public Use
  Company Number: ES-JNJFOC-20111008888

PATIENT

DRUGS (2)
  1. REMICADE [Suspect]
     Indication: PRODUCT USED FOR UNKNOWN INDICATION
     Dosage: TREATED ON MAINTENANCE THERAPY FOR APPROXIMATELY 3 YEARS
     Route: 042
  2. AZATHIOPRINE [Suspect]
     Indication: PRODUCT USED FOR UNKNOWN INDICATION
     Dosage: TREATED ON MAINTENANCE THERAPY FOR APPROXIMATELY 3 YEARS
     Route: 065

REACTIONS (1)
  - SQUAMOUS CELL CARCINOMA [None]
